FAERS Safety Report 6926158-8 (Version None)
Quarter: 2010Q3

REPORT INFORMATION
  Report Type: 
  Country: None (occurrence: None)
  Receive Date: 20100816
  Receipt Date: 20100807
  Transmission Date: 20110219
  Serious: Yes (Other)
  Sender: FDA-Public Use
  Company Number: US-AMGEN-QUU429838

PATIENT
  Sex: Female

DRUGS (2)
  1. ENBREL [Suspect]
     Indication: JUVENILE ARTHRITIS
     Route: 058
     Dates: start: 20100520
  2. METHOTREXATE [Concomitant]
     Route: 058
     Dates: start: 20100520

REACTIONS (2)
  - BODY TEMPERATURE INCREASED [None]
  - RESPIRATORY DISORDER [None]
